FAERS Safety Report 9019470 (Version 2)
Quarter: 2013Q1

REPORT INFORMATION
  Report Type: Spontaneous
  Country: IT (occurrence: IT)
  Receive Date: 20130118
  Receipt Date: 20130131
  Transmission Date: 20140127
  Serious: Yes (Other)
  Sender: FDA-Public Use
  Company Number: IT-ASTRAZENECA-2013SE02175

PATIENT
  Age: 25619 Day
  Sex: Female

DRUGS (11)
  1. MERREM [Suspect]
     Indication: URINARY TRACT INFECTION
     Dosage: 500 MG POWDER FOR SOLUTION FOR INJECTION, 3 G DAILY
     Route: 042
     Dates: start: 20121106, end: 20121108
  2. MERREM [Suspect]
     Indication: URINARY TRACT INFECTION
     Route: 042
     Dates: end: 20121116
  3. COLIMICINA [Suspect]
     Indication: URINARY TRACT INFECTION
     Dosage: 1000000 U/4 ML POWDER AND SOLVENT FOR SOLUTION FOR INJECTION, 9000000 IU
     Route: 042
     Dates: start: 20121106, end: 20121108
  4. COLIMICINA [Suspect]
     Indication: URINARY TRACT INFECTION
     Route: 042
     Dates: end: 20121116
  5. TAREG [Concomitant]
     Indication: HYPERTENSION
     Route: 048
     Dates: start: 20121024
  6. NORVASC [Concomitant]
     Indication: HYPERTENSION
     Route: 048
     Dates: start: 20121024
  7. CARDIOASPIRIN [Concomitant]
     Route: 048
     Dates: start: 20121024
  8. CATAPRESAN TTS [Concomitant]
     Route: 062
     Dates: start: 20121024
  9. FUROSEMIDE [Concomitant]
     Route: 048
     Dates: start: 20121024
  10. ZOTON [Concomitant]
     Route: 048
     Dates: start: 20121024
  11. METORPOLOL [Concomitant]
     Route: 048
     Dates: start: 20121024

REACTIONS (1)
  - Renal failure acute [Not Recovered/Not Resolved]
